FAERS Safety Report 8074443-1 (Version None)
Quarter: 2012Q1

REPORT INFORMATION
  Report Type: 
  Country: None (occurrence: None)
  Receive Date: 20120126
  Receipt Date: 20120113
  Transmission Date: 20120608
  Serious: Yes (Hospitalization)
  Sender: FDA-Public Use
  Company Number: IT-MYLANLABS-2012S1001337

PATIENT
  Age: 36 Year
  Sex: Female
  Weight: 49 kg

DRUGS (4)
  1. METFORMIN HCL [Suspect]
     Indication: INSULIN RESISTANCE
     Dosage: 1000MG THREE TIMES DAILY
     Route: 065
  2. LEVOTHYROXINE SODIUM [Suspect]
     Indication: HYPERTHYROIDISM
     Dosage: 100 MICROG/DAY
     Route: 065
  3. AMILORIDE HCL AND HYDROCHLOROTHIAZIDE [Suspect]
     Indication: OEDEMA PERIPHERAL
     Dosage: 5/50MG DAY
     Route: 065
  4. BISACODYL [Suspect]
     Indication: CONSTIPATION
     Route: 065

REACTIONS (5)
  - DRUG ABUSE [None]
  - LACTIC ACIDOSIS [None]
  - HYPONATRAEMIA [None]
  - RENAL FAILURE ACUTE [None]
  - HYPOKALAEMIA [None]
